FAERS Safety Report 14225272 (Version 1)
Quarter: 2017Q4

REPORT INFORMATION
  Report Type: Report from Study
  Country: IN (occurrence: IN)
  Receive Date: 20171127
  Receipt Date: 20171127
  Transmission Date: 20180321
  Serious: Yes (Death)
  Sender: FDA-Public Use
  Company Number: PHHY2017IN174369

PATIENT
  Age: 64 Year
  Sex: Female

DRUGS (1)
  1. SPEXIB [Suspect]
     Active Substance: CERITINIB
     Indication: CHRONIC MYELOID LEUKAEMIA
     Dosage: 750 MG, QD
     Route: 048
     Dates: start: 20170303

REACTIONS (2)
  - Product use in unapproved indication [None]
  - Death [Fatal]

NARRATIVE: CASE EVENT DATE: 20171029
